FAERS Safety Report 16565046 (Version 1)
Quarter: 2019Q3

REPORT INFORMATION
  Report Type: Report from Study
  Country: MX (occurrence: MX)
  Receive Date: 20190712
  Receipt Date: 20190712
  Transmission Date: 20191004
  Serious: Yes (Other)
  Sender: FDA-Public Use
  Company Number: PHHY2019MX161519

PATIENT
  Sex: Female
  Weight: 57 kg

DRUGS (1)
  1. STALEVO [Suspect]
     Active Substance: CARBIDOPA\ENTACAPONE\LEVODOPA
     Indication: PARKINSON^S DISEASE
     Dosage: 1 DF, QID (ENTACAPONE 150 MG, LEVODOPA 37.5 MG, CARBIDOPA 200 MG)
     Route: 048
     Dates: start: 201612

REACTIONS (1)
  - Drug dependence [Unknown]
